FAERS Safety Report 8171771-6 (Version None)
Quarter: 2012Q1

REPORT INFORMATION
  Report Type: 
  Country: None (occurrence: None)
  Receive Date: 20120228
  Receipt Date: 20120125
  Transmission Date: 20120608
  Serious: Yes (Life-Threatening, Hospitalization, Other)
  Sender: FDA-Public Use
  Company Number: US-GLAXOSMITHKLINE-A0964020A

PATIENT
  Age: 64 Year
  Sex: Male

DRUGS (5)
  1. DIOVAN [Concomitant]
  2. AVODART [Suspect]
     Indication: BENIGN PROSTATIC HYPERPLASIA
     Dosage: .5MG PER DAY
     Route: 048
     Dates: start: 20070501
  3. ATENOLOL [Concomitant]
  4. DOXAZOSIN [Concomitant]
  5. MINOXIDIL [Concomitant]

REACTIONS (2)
  - MASTECTOMY [None]
  - BREAST CANCER MALE [None]
